FAERS Safety Report 8399387-7 (Version None)
Quarter: 2012Q2

REPORT INFORMATION
  Report Type: 
  Country: None (occurrence: None)
  Receive Date: 20120531
  Receipt Date: 20120525
  Transmission Date: 20120825
  Serious: Yes (Life-Threatening, Hospitalization)
  Sender: FDA-Public Use
  Company Number: 2012SP001164

PATIENT
  Age: 49 Year
  Sex: Female
  Weight: 83 kg

DRUGS (11)
  1. ZYPREXA [Concomitant]
     Route: 048
     Dates: start: 20110101, end: 20110101
  2. TRAZODONE HCL [Concomitant]
     Indication: PRODUCT USED FOR UNKNOWN INDICATION
  3. LITHIUM CARBONATE [Concomitant]
     Indication: MOOD SWINGS
     Dates: start: 20000101
  4. LATUDA [Suspect]
     Indication: BIPOLAR I DISORDER
     Route: 048
     Dates: start: 20120416, end: 20111206
  5. LAMICTAL [Concomitant]
     Indication: PRODUCT USED FOR UNKNOWN INDICATION
     Route: 048
     Dates: start: 20000101
  6. ZYPREXA [Concomitant]
     Route: 048
     Dates: start: 20000101, end: 20110101
  7. ZOLOFT [Concomitant]
     Indication: DEPRESSION
     Route: 048
     Dates: start: 20100901
  8. CLONAZEPAM [Concomitant]
     Indication: PRODUCT USED FOR UNKNOWN INDICATION
     Dates: start: 20110201
  9. AMBIEN [Suspect]
     Indication: PRODUCT USED FOR UNKNOWN INDICATION
  10. ZYPREXA [Concomitant]
     Indication: BIPOLAR I DISORDER
     Route: 048
     Dates: start: 20110526
  11. TEMAZEPAM [Concomitant]
     Indication: PRODUCT USED FOR UNKNOWN INDICATION

REACTIONS (15)
  - INTENTIONAL OVERDOSE [None]
  - SUICIDAL IDEATION [None]
  - BLOOD SODIUM DECREASED [None]
  - INJURY [None]
  - DELUSION [None]
  - INSOMNIA [None]
  - MEMORY IMPAIRMENT [None]
  - ANXIETY [None]
  - INTENTIONAL DRUG MISUSE [None]
  - DEPRESSED MOOD [None]
  - OBSESSIVE THOUGHTS [None]
  - SOMNOLENCE [None]
  - DISTURBANCE IN ATTENTION [None]
  - CONFUSIONAL STATE [None]
  - HALLUCINATION, AUDITORY [None]
